FAERS Safety Report 14840612 (Version 2)
Quarter: 2018Q2

REPORT INFORMATION
  Report Type: Spontaneous
  Country: US (occurrence: US)
  Receive Date: 20180503
  Receipt Date: 20180613
  Transmission Date: 20180711
  Serious: Yes (Other)
  Sender: FDA-Public Use
  Company Number: US-IROKO PHARMACEUTICALS LLC-US-I09001-18-00058

PATIENT
  Age: 5 Month
  Sex: Female

DRUGS (3)
  1. ALBUMIN [Concomitant]
     Active Substance: ALBUMIN HUMAN
     Indication: CONGENITAL NEPHROTIC SYNDROME
     Route: 041
  2. ENALAPRIL [Suspect]
     Active Substance: ENALAPRIL
     Indication: CONGENITAL NEPHROTIC SYNDROME
     Route: 065
  3. INDOMETHACIN AMBIGUOUS [Suspect]
     Active Substance: INDOMETHACIN
     Indication: CONGENITAL NEPHROTIC SYNDROME
     Route: 065

REACTIONS (10)
  - Off label use [Unknown]
  - Peritoneal dialysis [Unknown]
  - Nephrectomy [Unknown]
  - Feeding intolerance [Unknown]
  - Renal transplant [Unknown]
  - Cerebrovascular accident [Unknown]
  - Gastroenterostomy [Unknown]
  - Gastrooesophageal reflux disease [Unknown]
  - Weight increased [Unknown]
  - Pancreatitis acute [Unknown]
